FAERS Safety Report 10650451 (Version 1)
Quarter: 2014Q4

REPORT INFORMATION
  Report Type: Spontaneous
  Country: US (occurrence: US)
  Receive Date: 20141213
  Receipt Date: 20141213
  Transmission Date: 20150529
  Serious: No
  Sender: FDA-Public Use
  Company Number: US-BAUSCH-SYM-2014-23976

PATIENT
  Age: 73 Year
  Sex: Male

DRUGS (1)
  1. XENAZINE [Suspect]
     Active Substance: TETRABENAZINE
     Indication: HUNTINGTON^S DISEASE
     Dosage: 12.5 MG ONE TABLET IN THE MORNING, HALF-TABLET AT 3 PM NOON, AND ONE TABLET IN THE EVENING
     Route: 048
     Dates: start: 20140520

REACTIONS (2)
  - Drug administration error [Not Recovered/Not Resolved]
  - Movement disorder [Recovered/Resolved]

NARRATIVE: CASE EVENT DATE: 2014
